FAERS Safety Report 8563878-6 (Version None)
Quarter: 2012Q3

REPORT INFORMATION
  Report Type: 
  Country: None (occurrence: None)
  Receive Date: 20120727
  Receipt Date: 20120727
  Transmission Date: 20120928
  Serious: Yes (Hospitalization)
  Sender: FDA-Public Use
  Company Number: None

PATIENT
  Age: 22 Year
  Sex: Male
  Weight: 55.3388 kg

DRUGS (2)
  1. ASACOL [Suspect]
     Indication: COLITIS ULCERATIVE
     Dosage: 2 TABLETS, 3 TIMES A DAY, PO
     Route: 048
     Dates: start: 20120608, end: 20120709
  2. PERRIGO, 4 G, PERRIGO [Suspect]
     Indication: COLITIS ULCERATIVE
     Dosage: 1 ONCE A DAY, RECTAL
     Route: 054
     Dates: start: 20120608, end: 20120709

REACTIONS (3)
  - CHEST PAIN [None]
  - DYSPNOEA [None]
  - GAIT DISTURBANCE [None]
